FAERS Safety Report 5045136-X (Version None)
Quarter: 2006Q3

REPORT INFORMATION
  Report Type: 
  Country: None (occurrence: None)
  Receive Date: 20060707
  Receipt Date: 20060704
  Transmission Date: 20061208
  Serious: Yes (Other)
  Sender: FDA-Public Use
  Company Number: GB-SANOFI-SYNTHELABO-A01200605127

PATIENT

DRUGS (1)
  1. ELOXATIN [Suspect]
     Dosage: UNK
     Route: 065

REACTIONS (1)
  - VOCAL CORD PARALYSIS [None]
